FAERS Safety Report 17491689 (Version 6)
Quarter: 2021Q2

REPORT INFORMATION
  Report Type: Report from Study
  Country: US (occurrence: US)
  Receive Date: 20200304
  Receipt Date: 20210603
  Transmission Date: 20210716
  Serious: Yes (Other)
  Sender: FDA-Public Use
  Company Number: NVSC2020US061414

PATIENT
  Age: 26 Year
  Sex: Female

DRUGS (2)
  1. AFINITOR [Suspect]
     Active Substance: EVEROLIMUS
     Indication: TUBEROUS SCLEROSIS COMPLEX
     Dosage: 10 MG, QD
     Route: 048
     Dates: start: 20200225
  2. AFINITOR DISPERZ [Suspect]
     Active Substance: EVEROLIMUS
     Indication: TUBEROUS SCLEROSIS COMPLEX
     Dosage: 10 MG, QD
     Route: 048
     Dates: start: 20200225

REACTIONS (10)
  - General physical health deterioration [Unknown]
  - Diarrhoea [Unknown]
  - Vomiting [Unknown]
  - Fatigue [Unknown]
  - Condition aggravated [Unknown]
  - Abdominal pain upper [Unknown]
  - Seizure [Unknown]
  - Feeling abnormal [Not Recovered/Not Resolved]
  - Abdominal discomfort [Unknown]
  - Decreased appetite [Unknown]

NARRATIVE: CASE EVENT DATE: 202002
